FAERS Safety Report 17016186 (Version 7)
Quarter: 2020Q2

REPORT INFORMATION
  Report Type: Spontaneous
  Country: US (occurrence: US)
  Receive Date: 20191111
  Receipt Date: 20200605
  Transmission Date: 20200713
  Serious: No
  Sender: FDA-Public Use
  Company Number: US-PFIZER INC-2019466994

PATIENT
  Age: 69 Year
  Sex: Male

DRUGS (2)
  1. SUTENT [Suspect]
     Active Substance: SUNITINIB MALATE
     Indication: HODGKIN^S DISEASE
     Dosage: 50 MG, CYCLIC (1 CAP BY MOUTH ONCE DAILY FOR 2 WEEKS THEN 1 WEEK OFF)
     Route: 048
  2. SUTENT [Suspect]
     Active Substance: SUNITINIB MALATE
     Indication: RENAL CANCER
     Dosage: 37.5 MG, CYCLIC(TAKE 2 WEEKS ON 1 WEEK OFF SCHEDULE)
     Route: 048

REACTIONS (3)
  - Speech disorder [Unknown]
  - Pollakiuria [Unknown]
  - Memory impairment [Unknown]
